FAERS Safety Report 19847375 (Version 1)
Quarter: 2021Q3

REPORT INFORMATION
  Report Type: Spontaneous
  Country: DE (occurrence: DE)
  Receive Date: 20210917
  Receipt Date: 20210917
  Transmission Date: 20211014
  Serious: Yes (Hospitalization, Other)
  Sender: FDA-Public Use
  Company Number: DE-TEVA-2021-DE-1952555

PATIENT
  Age: 65 Year
  Sex: Female
  Weight: 49 kg

DRUGS (8)
  1. ATORVASTATIN [Concomitant]
     Active Substance: ATORVASTATIN
     Dosage: 40 MILLIGRAM DAILY;  0?0?1?0
     Route: 048
  2. ACETYLSALICYLSAEURE [Concomitant]
     Active Substance: ASPIRIN
     Dosage: 100 MILLIGRAM DAILY; 0?1?0?0
     Route: 048
  3. KALINOR?RETARD P 600 MG HARTKAPSELN, RETARDIERT [Concomitant]
     Dosage: 1800 MILLIGRAM DAILY; 1?1?1?0, KALINOR?RETARD P 600 MG HARD CAPSULES, RETARDED
     Route: 048
  4. TILIDINE/NALOXONE [Suspect]
     Active Substance: NALOXONE HYDROCHLORIDE\TILIDINE HYDROCHLORIDE
     Dosage: 3 DOSAGE FORMS DAILY; 8|100 MG, 1?0?1?1
     Route: 048
  5. TORASEMID [Suspect]
     Active Substance: TORSEMIDE
     Dosage: 2 DOSAGE FORMS DAILY; 10 MG, 2?0?0?0
     Route: 048
  6. BISOPROLOL [Concomitant]
     Active Substance: BISOPROLOL
     Dosage: 5 MILLIGRAM DAILY; 1?0?0?0
     Route: 048
  7. OMEPRAZOL [Concomitant]
     Active Substance: OMEPRAZOLE
     Dosage: 40 MILLIGRAM DAILY; 1?0?0?0
     Route: 048
  8. QUETIAPINE. [Concomitant]
     Active Substance: QUETIAPINE
     Dosage: 50 MILLIGRAM DAILY; 0?1?0?0
     Route: 048

REACTIONS (9)
  - Nausea [Unknown]
  - General physical health deterioration [Unknown]
  - Hyponatraemia [Unknown]
  - Vomiting [Unknown]
  - Dysuria [Unknown]
  - Hypokalaemia [Unknown]
  - Abdominal pain lower [Unknown]
  - Night sweats [Unknown]
  - Weight decreased [Unknown]
